FAERS Safety Report 9234434 (Version 1)
Quarter: 2013Q2

REPORT INFORMATION
  Report Type: Spontaneous
  Country: US (occurrence: US)
  Receive Date: 20130416
  Receipt Date: 20130416
  Transmission Date: 20140414
  Serious: No
  Sender: FDA-Public Use
  Company Number: US-PFIZER INC-2013119798

PATIENT
  Age: 36 Year
  Sex: Male
  Weight: 153 kg

DRUGS (2)
  1. GABAPENTIN [Suspect]
     Indication: NEUROPATHY PERIPHERAL
     Dosage: 600 MG, 3X/DAY
     Route: 048
     Dates: start: 201301, end: 20130410
  2. NAPROXEN [Concomitant]
     Indication: TOOTHACHE
     Dosage: UNK, AS NEEDED

REACTIONS (3)
  - Fibromyalgia [Unknown]
  - Pain [Unknown]
  - Off label use [Unknown]
